FAERS Safety Report 14364966 (Version 1)
Quarter: 2018Q1

REPORT INFORMATION
  Report Type: Spontaneous
  Country: US (occurrence: US)
  Receive Date: 20180108
  Receipt Date: 20180108
  Transmission Date: 20180509
  Serious: No
  Sender: FDA-Public Use
  Company Number: US-ROCHE-2001701

PATIENT
  Age: 52 Year
  Sex: Male

DRUGS (6)
  1. DEMEROL [Concomitant]
     Active Substance: MEPERIDINE HYDROCHLORIDE
     Dosage: NO
     Route: 065
     Dates: start: 20170920
  2. PREDNISONE. [Concomitant]
     Active Substance: PREDNISONE
     Dosage: NO
     Route: 065
  3. GAZYVA [Suspect]
     Active Substance: OBINUTUZUMAB
     Indication: PRODUCT USED FOR UNKNOWN INDICATION
     Dosage: YES
     Route: 065
     Dates: start: 20170920
  4. BENADRYL [Concomitant]
     Active Substance: DIPHENHYDRAMINE HYDROCHLORIDE
     Dosage: NO
     Route: 065
  5. TYLENOL [Concomitant]
     Active Substance: ACETAMINOPHEN
     Dosage: NO
     Route: 065
  6. PEPCID (UNITED STATES) [Concomitant]
     Dosage: NO
     Route: 065

REACTIONS (3)
  - Infusion related reaction [Unknown]
  - Blood count abnormal [Unknown]
  - Platelet count decreased [Unknown]

NARRATIVE: CASE EVENT DATE: 20170920
